FAERS Safety Report 9034574 (Version 1)
Quarter: 2013Q1

REPORT INFORMATION
  Report Type: Spontaneous
  Country: JP (occurrence: None)
  Receive Date: 20130115
  Receipt Date: 20130115
  Transmission Date: 20140127
  Serious: Yes (Death)
  Sender: FDA-Public Use
  Company Number: 2013010049

PATIENT
  Sex: Female
  Weight: 59 kg

DRUGS (5)
  1. ZOLPIDEM [Suspect]
  2. MIRTAZAPINE (MIRTAZAPINE) [Suspect]
  3. AMOXAPINE [Suspect]
  4. SERTRALINE (SERTRALINE) (SERTRALINE) [Concomitant]
  5. CHLORPROMAZINE (CHLORPROMAZINE) [Concomitant]

REACTIONS (1)
  - Toxicity to various agents [None]
